FAERS Safety Report 14309861 (Version 1)
Quarter: 2017Q4

REPORT INFORMATION
  Report Type: Spontaneous
  Country: IT (occurrence: IT)
  Receive Date: 20171220
  Receipt Date: 20171220
  Transmission Date: 20180321
  Serious: Yes (Other)
  Sender: FDA-Public Use
  Company Number: IT-PFIZER INC-2017537808

PATIENT
  Age: 21 Year
  Sex: Female

DRUGS (3)
  1. XANAX [Suspect]
     Active Substance: ALPRAZOLAM
     Dosage: 14 DF (TOTAL)
     Route: 048
     Dates: start: 20171116, end: 20171116
  2. TOPAMAX [Suspect]
     Active Substance: TOPIRAMATE
     Dosage: 60 DF (TOTAL)
     Route: 048
     Dates: start: 20171116, end: 20171116
  3. HALDOL [Suspect]
     Active Substance: HALOPERIDOL
     Dosage: 25 ML (TOTAL)
     Route: 048
     Dates: start: 20171116, end: 20171116

REACTIONS (3)
  - Intentional self-injury [Unknown]
  - Intentional overdose [Unknown]
  - Sopor [Unknown]

NARRATIVE: CASE EVENT DATE: 20171116
